FAERS Safety Report 8984760 (Version 1)
Quarter: 2012Q4

REPORT INFORMATION
  Report Type: Report from Study
  Country: US (occurrence: US)
  Receive Date: 20121225
  Receipt Date: 20121225
  Transmission Date: 20130627
  Serious: Yes (Other)
  Sender: FDA-Public Use
  Company Number: US-JNJFOC-20121208277

PATIENT
  Age: 24 Year
  Sex: Male

DRUGS (1)
  1. RISPERDAL M-TAB [Suspect]
     Indication: PRODUCT USED FOR UNKNOWN INDICATION
     Route: 048

REACTIONS (4)
  - Hallucination, auditory [Unknown]
  - Speech disorder [Unknown]
  - Emotional disorder [Unknown]
  - Product quality issue [None]
